FAERS Safety Report 16758973 (Version 4)
Quarter: 2019Q3

REPORT INFORMATION
  Report Type: Report from Study
  Country: CO (occurrence: CO)
  Receive Date: 20190830
  Receipt Date: 20190925
  Transmission Date: 20191005
  Serious: Yes (Hospitalization, Other)
  Sender: FDA-Public Use
  Company Number: PHHY2016CO010145

PATIENT
  Age: 58 Year
  Sex: Female
  Weight: 56 kg

DRUGS (21)
  1. AFINITOR [Suspect]
     Active Substance: EVEROLIMUS
     Indication: NEUROENDOCRINE TUMOUR
     Dosage: 10 MG, QD
     Route: 048
     Dates: start: 20150101
  2. TRAMADOL. [Concomitant]
     Active Substance: TRAMADOL
     Indication: PRODUCT USED FOR UNKNOWN INDICATION
     Dosage: UNK
     Route: 065
  3. SANDOSTATIN LAR DEPOT [Suspect]
     Active Substance: OCTREOTIDE ACETATE
     Indication: GASTROENTEROPANCREATIC NEUROENDOCRINE TUMOUR DISEASE
     Dosage: 30 MG, QMO (ONCE A MONTH)
     Route: 030
     Dates: start: 20150101
  4. SANDOSTATIN LAR DEPOT [Suspect]
     Active Substance: OCTREOTIDE ACETATE
     Dosage: 30 MG, QMO (ONCE A MONTH)
     Route: 030
  5. AFINITOR [Suspect]
     Active Substance: EVEROLIMUS
     Indication: HEPATIC CANCER
     Dosage: 10 MG, QD
     Route: 048
     Dates: start: 2015
  6. CARVEDILOL. [Suspect]
     Active Substance: CARVEDILOL
     Indication: PRODUCT USED FOR UNKNOWN INDICATION
     Dosage: UNK
     Route: 065
  7. ESOMEPRAZOLE. [Concomitant]
     Active Substance: ESOMEPRAZOLE MAGNESIUM
     Indication: PRODUCT USED FOR UNKNOWN INDICATION
     Route: 065
  8. SANDOSTATIN LAR DEPOT [Suspect]
     Active Substance: OCTREOTIDE ACETATE
     Indication: HEPATIC CANCER
     Dosage: 30 MG, QMO (ONCE A MONTH)
     Route: 030
     Dates: start: 20160224, end: 20170702
  9. AFINITOR [Suspect]
     Active Substance: EVEROLIMUS
     Indication: LEIOMYOMA
     Dosage: 10 MG, QD
     Route: 048
     Dates: start: 20160107, end: 201605
  10. CLONAZEPAM. [Concomitant]
     Active Substance: CLONAZEPAM
     Indication: SLEEP DISORDER
     Dosage: 2 MG, BID, AT NIGHT
     Route: 065
  11. METOCLOPRAMIDE. [Concomitant]
     Active Substance: METOCLOPRAMIDE
     Indication: PRODUCT USED FOR UNKNOWN INDICATION
     Dosage: 30 MG, (20MG IN THE MORNING AND 10 MG IN THE AFTERNOON)
     Route: 065
  12. SANDOSTATIN LAR DEPOT [Suspect]
     Active Substance: OCTREOTIDE ACETATE
     Dosage: 30 MG, QMO (ONCE A MONTH)
     Route: 030
     Dates: start: 201710, end: 20180423
  13. BISACODYL. [Concomitant]
     Active Substance: BISACODYL
     Indication: PRODUCT USED FOR UNKNOWN INDICATION
     Dosage: UNK
     Route: 065
  14. SERTRALINE [Suspect]
     Active Substance: SERTRALINE HYDROCHLORIDE
     Indication: PRODUCT USED FOR UNKNOWN INDICATION
     Dosage: 25 MG, QD
     Route: 048
  15. ENTEROGERMINA [Concomitant]
     Active Substance: BACILLUS SUBTILIS
     Indication: PRODUCT USED FOR UNKNOWN INDICATION
     Dosage: 5 MG, UNK
     Route: 048
  16. AFINITOR [Suspect]
     Active Substance: EVEROLIMUS
     Dosage: 10 MG, QD
     Route: 048
     Dates: start: 20170310, end: 20180407
  17. BUSCAPINA [Concomitant]
     Indication: PRODUCT USED FOR UNKNOWN INDICATION
     Dosage: 500 MG, Q12H
     Route: 065
  18. RANITIDINE. [Concomitant]
     Active Substance: RANITIDINE
     Indication: PRODUCT USED FOR UNKNOWN INDICATION
     Dosage: 150 MG, (BEFORE EVERY MEALS)
     Route: 005
  19. AFINITOR [Suspect]
     Active Substance: EVEROLIMUS
     Dosage: 10 MG, QD
     Route: 048
  20. DOLEX [Concomitant]
     Active Substance: IBUPROFEN
     Indication: PRODUCT USED FOR UNKNOWN INDICATION
     Dosage: UNK
     Route: 065
  21. DESLORATADINE. [Concomitant]
     Active Substance: DESLORATADINE
     Indication: PRODUCT USED FOR UNKNOWN INDICATION
     Dosage: 500 MG, Q12H
     Route: 065

REACTIONS (86)
  - Inflammation [Not Recovered/Not Resolved]
  - Dysbiosis [Unknown]
  - Diarrhoea [Unknown]
  - Haemoglobin decreased [Unknown]
  - Blood chromogranin A increased [Unknown]
  - Oral pruritus [Unknown]
  - Lip dry [Unknown]
  - Nausea [Unknown]
  - Decreased appetite [Unknown]
  - Product use in unapproved indication [Unknown]
  - Insomnia [Not Recovered/Not Resolved]
  - Proctalgia [Unknown]
  - Retinal disorder [Unknown]
  - Bone pain [Unknown]
  - Mouth injury [Unknown]
  - Dysphonia [Unknown]
  - Hyperhidrosis [Unknown]
  - Stomatitis [Not Recovered/Not Resolved]
  - Abdominal distension [Unknown]
  - Hypersensitivity [Unknown]
  - Balance disorder [Unknown]
  - Blister [Unknown]
  - Oral mucosal blistering [Unknown]
  - Visual impairment [Unknown]
  - Ocular hyperaemia [Unknown]
  - Pain [Not Recovered/Not Resolved]
  - Dizziness [Unknown]
  - Pruritus [Not Recovered/Not Resolved]
  - General physical health deterioration [Unknown]
  - Breast mass [Unknown]
  - Contusion [Unknown]
  - Limb discomfort [Unknown]
  - Weight decreased [Unknown]
  - Dry skin [Not Recovered/Not Resolved]
  - Skin laceration [Unknown]
  - Arthritis [Unknown]
  - Abdominal pain [Unknown]
  - Malaise [Unknown]
  - Tongue ulceration [Unknown]
  - Oral mucosal exfoliation [Unknown]
  - Lacrimation increased [Unknown]
  - Food intolerance [Unknown]
  - Anorectal swelling [Unknown]
  - Dysuria [Unknown]
  - Anal inflammation [Not Recovered/Not Resolved]
  - Plicated tongue [Unknown]
  - Constipation [Unknown]
  - Abdominal pain upper [Unknown]
  - Vomiting [Unknown]
  - Pyrexia [Unknown]
  - Tongue dry [Unknown]
  - Therapeutic product effect incomplete [Unknown]
  - Gait inability [Unknown]
  - Glaucoma [Unknown]
  - Hepatic cancer recurrent [Unknown]
  - Muscular weakness [Unknown]
  - Thirst [Unknown]
  - Dry eye [Unknown]
  - Food aversion [Unknown]
  - Proctitis [Unknown]
  - Transaminases increased [Unknown]
  - Burning sensation [Not Recovered/Not Resolved]
  - Platelet count decreased [Unknown]
  - Eye irritation [Unknown]
  - Skin fissures [Unknown]
  - Rash [Unknown]
  - Tremor [Unknown]
  - Tongue blistering [Unknown]
  - Hepatic mass [Not Recovered/Not Resolved]
  - Odynophagia [Unknown]
  - Oropharyngeal pain [Unknown]
  - Cataract [Unknown]
  - Skin hypertrophy [Unknown]
  - Nail disorder [Unknown]
  - Mucosal inflammation [Not Recovered/Not Resolved]
  - Headache [Unknown]
  - Flatulence [Unknown]
  - Pain in extremity [Unknown]
  - Pharyngeal ulceration [Unknown]
  - Asthenia [Unknown]
  - Mass [Unknown]
  - Skin exfoliation [Unknown]
  - Haemorrhoids [Not Recovered/Not Resolved]
  - Tachycardia [Not Recovered/Not Resolved]
  - Skin ulcer [Unknown]
  - Eye discharge [Unknown]

NARRATIVE: CASE EVENT DATE: 20160107
